FAERS Safety Report 4324560-4 (Version None)
Quarter: 2004Q1

REPORT INFORMATION
  Report Type: 
  Country: None (occurrence: None)
  Receive Date: 20040322
  Receipt Date: 20040310
  Transmission Date: 20041129
  Serious: Yes (Hospitalization)
  Sender: FDA-Public Use
  Company Number: FR-JNJFOC-20040302669

PATIENT
  Age: 63 Year
  Sex: Female

DRUGS (11)
  1. REMICADE [Suspect]
     Indication: RHEUMATOID ARTHRITIS
     Dosage: SEE IMAGE
     Route: 042
     Dates: start: 20031112, end: 20031128
  2. REMICADE [Suspect]
     Indication: RHEUMATOID ARTHRITIS
     Dosage: SEE IMAGE
     Route: 042
     Dates: start: 20040112, end: 20040118
  3. NORVATREX (METHOTREXATE) [Concomitant]
  4. PREDNISONE [Concomitant]
  5. FOLIC ACID [Concomitant]
  6. CALTRATE VITAMIN D3 (LEKOVIT CA) [Concomitant]
  7. LORAZEPAM [Concomitant]
  8. STILNOX (ZOLPIDEM) [Concomitant]
  9. RIFINAH (RIFINAH) [Concomitant]
  10. DOLIPRAM (PARACETAMOL) [Concomitant]
  11. RANITIDINE HYDROCHLORIDE [Concomitant]

REACTIONS (7)
  - BLOOD IMMUNOGLOBULIN M INCREASED [None]
  - COMPLEMENT FACTOR C3 INCREASED [None]
  - GAMMA-GLUTAMYLTRANSFERASE INCREASED [None]
  - LYMPHOCYTIC DERMATITIS [None]
  - PETECHIAE [None]
  - RED BLOOD CELL SEDIMENTATION RATE INCREASED [None]
  - RHEUMATOID FACTOR POSITIVE [None]
